FAERS Safety Report 22325076 (Version 6)
Quarter: 2024Q2

REPORT INFORMATION
  Report Type: Spontaneous
  Country: US (occurrence: US)
  Receive Date: 20230516
  Receipt Date: 20240510
  Transmission Date: 20240716
  Serious: Yes (Hospitalization)
  Sender: FDA-Public Use
  Company Number: US-PFIZER INC-PV202300086410

PATIENT
  Age: 50 Year
  Sex: Female
  Weight: 58.06 kg

DRUGS (4)
  1. OXBRYTA [Suspect]
     Active Substance: VOXELOTOR
     Indication: Sickle cell disease
     Dosage: 300 MILLIGRAMS, 5 TABLETS EVERYDAY IN CLEAR LIQUID
     Route: 048
     Dates: start: 202201, end: 2022
  2. OXBRYTA [Suspect]
     Active Substance: VOXELOTOR
     Dosage: 300 MG TABS TAKE 5 TABS, BY MOUTH, ONCE DAILY.
     Route: 048
     Dates: start: 20220721
  3. OXBRYTA [Suspect]
     Active Substance: VOXELOTOR
     Dosage: TAKE 5 EVERYDAY IN LIQUID
     Route: 048
  4. MORPHINE [Concomitant]
     Active Substance: MORPHINE
     Indication: Pain
     Dosage: UNK

REACTIONS (4)
  - Haemoglobin decreased [Unknown]
  - Infection [Unknown]
  - Sickle cell anaemia with crisis [Unknown]
  - Product dose omission issue [Unknown]
